FAERS Safety Report 8367078-4 (Version None)
Quarter: 2012Q2

REPORT INFORMATION
  Report Type: 
  Country: None (occurrence: None)
  Receive Date: 20120517
  Receipt Date: 20120509
  Transmission Date: 20120825
  Serious: Yes (Other)
  Sender: FDA-Public Use
  Company Number: US-ASTRAZENECA-2012SE29896

PATIENT
  Age: 68 Year
  Sex: Female
  Weight: 101.6 kg

DRUGS (3)
  1. SEROQUEL [Suspect]
     Indication: BIPOLAR DISORDER
     Route: 048
     Dates: start: 20081001, end: 20120301
  2. THYROID MEDICATION [Concomitant]
  3. OTHER MEDICATION [Concomitant]
     Indication: ANXIETY

REACTIONS (10)
  - DIABETES MELLITUS [None]
  - WEIGHT INCREASED [None]
  - HEADACHE [None]
  - EMOTIONAL POVERTY [None]
  - ABDOMINAL DISTENSION [None]
  - ARTHRITIS [None]
  - LOCAL SWELLING [None]
  - HYPERTENSION [None]
  - VISION BLURRED [None]
  - SOMNOLENCE [None]
